FAERS Safety Report 15256087 (Version 4)
Quarter: 2018Q4

REPORT INFORMATION
  Report Type: Spontaneous
  Country: JP (occurrence: JP)
  Receive Date: 20180808
  Receipt Date: 20181121
  Transmission Date: 20190204
  Serious: Yes (Hospitalization, Other)
  Sender: FDA-Public Use
  Company Number: JP-PFIZER INC-2018315658

PATIENT
  Age: 7 Decade
  Sex: Male

DRUGS (1)
  1. ANCARON [Suspect]
     Active Substance: AMIODARONE HYDROCHLORIDE
     Indication: VENTRICULAR TACHYCARDIA
     Dosage: UNK
     Route: 048

REACTIONS (9)
  - Cell marker increased [Recovering/Resolving]
  - Computerised tomogram thorax abnormal [Recovering/Resolving]
  - Respiratory disorder [Recovering/Resolving]
  - Hypoxia [Recovering/Resolving]
  - Interstitial lung disease [Recovering/Resolving]
  - Pneumonia [Recovering/Resolving]
  - Cardiac failure acute [Recovering/Resolving]
  - Cough [Recovering/Resolving]
  - Disseminated intravascular coagulation [Recovering/Resolving]
